FAERS Safety Report 10012169 (Version 1)
Quarter: 2014Q1

REPORT INFORMATION
  Report Type: Spontaneous
  Country: US (occurrence: None)
  Receive Date: 20140313
  Receipt Date: 20140313
  Transmission Date: 20141002
  Serious: Yes (Other)
  Sender: FDA-Public Use
  Company Number: None

PATIENT
  Age: 15 Year
  Sex: Male
  Weight: 61.24 kg

DRUGS (5)
  1. ZENATANE [Suspect]
     Indication: ACNE CYSTIC
     Route: 048
     Dates: start: 20140129, end: 20140224
  2. CLARAVIS [Concomitant]
  3. PROBIOTIC [Concomitant]
  4. MULTIVITAMIN [Concomitant]
  5. CALCIUM [Concomitant]

REACTIONS (5)
  - Acne cystic [None]
  - Acne [None]
  - Inflammation [None]
  - Product substitution issue [None]
  - Product quality issue [None]
